FAERS Safety Report 6233528-2 (Version None)
Quarter: 2009Q2

REPORT INFORMATION
  Report Type: 
  Country: None (occurrence: None)
  Receive Date: 20090617
  Receipt Date: 20090605
  Transmission Date: 20091009
  Serious: Yes (Other)
  Sender: FDA-Public Use
  Company Number: JP-SANOFI-SYNTHELABO-A01200906051

PATIENT
  Sex: Female

DRUGS (7)
  1. PENTAZOCINE LACTATE [Concomitant]
     Indication: DRUG USE FOR UNKNOWN INDICATION
     Dosage: UNK
     Route: 048
     Dates: start: 20090501
  2. NAUZELIN [Concomitant]
     Indication: DRUG USE FOR UNKNOWN INDICATION
     Dosage: UNK
     Route: 048
     Dates: start: 20090508, end: 20090527
  3. CRAVIT [Concomitant]
     Indication: DRUG USE FOR UNKNOWN INDICATION
     Dosage: UNK
     Route: 048
     Dates: start: 20090501, end: 20090514
  4. SELBEX [Concomitant]
     Indication: DRUG USE FOR UNKNOWN INDICATION
     Dosage: UNK
     Route: 048
     Dates: start: 20090503, end: 20090506
  5. LOBU [Concomitant]
     Indication: DRUG USE FOR UNKNOWN INDICATION
     Dosage: UNK
     Route: 048
     Dates: start: 20090503, end: 20090506
  6. MYSLEE [Suspect]
     Indication: INSOMNIA
     Route: 048
     Dates: start: 20090503
  7. MEDICON [Suspect]
     Indication: DRUG USE FOR UNKNOWN INDICATION
     Dosage: 45 MG
     Route: 048
     Dates: start: 20090525

REACTIONS (3)
  - ANGLE CLOSURE GLAUCOMA [None]
  - EYE PAIN [None]
  - OCULAR HYPERTENSION [None]
